FAERS Safety Report 21444049 (Version 1)
Quarter: 2022Q4

REPORT INFORMATION
  Report Type: Report from Study
  Country: GR (occurrence: GR)
  Receive Date: 20221012
  Receipt Date: 20221012
  Transmission Date: 20230113
  Serious: Yes (Hospitalization)
  Sender: FDA-Public Use
  Company Number: GR-ABBVIE-4149444

PATIENT
  Sex: Female
  Weight: 80 kg

DRUGS (2)
  1. CARBIDOPA\LEVODOPA [Suspect]
     Active Substance: CARBIDOPA\LEVODOPA
     Indication: Product used for unknown indication
     Dosage: MORNING DOSE: 10.5 ML; CONTINUOUS RATE: UNKNOWN; EXTRA DOSE: 1.3 ML
     Route: 050
     Dates: start: 20220209, end: 20221008
  2. CARBIDOPA\LEVODOPA [Suspect]
     Active Substance: CARBIDOPA\LEVODOPA
     Dosage: MORNING DOSE: 10.5ML; CONTINUOUS RATE: 3.0MK/HR; EXTRA DOSE: 1.3ML
     Route: 050
     Dates: start: 20221008

REACTIONS (5)
  - Upper limb fracture [Recovering/Resolving]
  - Fall [Recovered/Resolved]
  - Bradykinesia [Not Recovered/Not Resolved]
  - Gait disturbance [Not Recovered/Not Resolved]
  - Walking aid user [Unknown]

NARRATIVE: CASE EVENT DATE: 20220101
